FAERS Safety Report 7826574-6 (Version None)
Quarter: 2011Q4

REPORT INFORMATION
  Report Type: 
  Country: None (occurrence: None)
  Receive Date: 20111020
  Receipt Date: 20111010
  Transmission Date: 20120403
  Serious: No
  Sender: FDA-Public Use
  Company Number: US-ELI_LILLY_AND_COMPANY-US201110003156

PATIENT
  Sex: Female

DRUGS (2)
  1. VICODIN [Concomitant]
     Indication: PAIN
  2. CYMBALTA [Suspect]
     Indication: DEPRESSION
     Dosage: 60 MG, UNKNOWN

REACTIONS (1)
  - LIVER FUNCTION TEST ABNORMAL [None]
